FAERS Safety Report 7101876-X (Version None)
Quarter: 2010Q4

REPORT INFORMATION
  Report Type: 
  Country: None (occurrence: None)
  Receive Date: 20101115
  Receipt Date: 20090428
  Transmission Date: 20110411
  Serious: Yes (Hospitalization)
  Sender: FDA-Public Use
  Company Number: US-KINGPHARMUSA00001-K200900537

PATIENT
  Sex: Male

DRUGS (1)
  1. AVINZA [Suspect]
     Dosage: 90 MG, TID

REACTIONS (1)
  - OVERDOSE [None]
